FAERS Safety Report 10930845 (Version 1)
Quarter: 2015Q1

REPORT INFORMATION
  Report Type: Spontaneous
  Country: US (occurrence: US)
  Receive Date: 20150319
  Receipt Date: 20150319
  Transmission Date: 20150721
  Serious: No
  Sender: FDA-Public Use
  Company Number: US-BAUSCH-BL-2014-004562

PATIENT
  Sex: Female
  Weight: 52.21 kg

DRUGS (6)
  1. DOXYCYCLINE. [Concomitant]
     Active Substance: DOXYCYCLINE
     Indication: PRODUCT USED FOR UNKNOWN INDICATION
  2. RETIN-A [Suspect]
     Active Substance: TRETINOIN
     Indication: ACNE CYSTIC
     Route: 061
  3. RETIN-A MICRO [Suspect]
     Active Substance: TRETINOIN
     Indication: ACNE CYSTIC
     Route: 061
  4. DHEA [Concomitant]
     Active Substance: DEHYDROEPIANDROSTERONE-3-SULFATE SODIUM
     Indication: PRODUCT USED FOR UNKNOWN INDICATION
  5. RETIN-A [Suspect]
     Active Substance: TRETINOIN
     Indication: ACNE CYSTIC
     Route: 061
  6. WELLBUTRIN [Concomitant]
     Active Substance: BUPROPION HYDROCHLORIDE
     Indication: PRODUCT USED FOR UNKNOWN INDICATION

REACTIONS (2)
  - Asthenia [Unknown]
  - Fatigue [Unknown]
